FAERS Safety Report 7978106-X (Version None)
Quarter: 2011Q4

REPORT INFORMATION
  Report Type: 
  Country: None (occurrence: None)
  Receive Date: 20111212
  Receipt Date: 20111212
  Transmission Date: 20120403
  Serious: Yes (Hospitalization)
  Sender: FDA-Public Use
  Company Number: None

PATIENT
  Age: 67 Year
  Sex: Female

DRUGS (5)
  1. ESTRACE [Concomitant]
  2. ZYRTEC [Concomitant]
  3. SPRYCEL [Suspect]
     Indication: CHRONIC MYELOID LEUKAEMIA
     Dosage: 100 MG QD PO
     Route: 048
     Dates: start: 20111203
  4. M.V.I. [Concomitant]
  5. NORTRIPTYLINE HCL [Concomitant]

REACTIONS (2)
  - PAIN [None]
  - INFLUENZA LIKE ILLNESS [None]
